FAERS Safety Report 7405477-5 (Version None)
Quarter: 2011Q2

REPORT INFORMATION
  Report Type: 
  Country: None (occurrence: None)
  Receive Date: 20110411
  Receipt Date: 20110315
  Transmission Date: 20111010
  Serious: Yes (Hospitalization)
  Sender: FDA-Public Use
  Company Number: US-BAYER-201039273NA

PATIENT
  Age: 49 Year
  Sex: Female
  Weight: 72.562 kg

DRUGS (3)
  1. LEXAPRO [Concomitant]
     Indication: DEPRESSION
     Dosage: 10 MG, QD
     Route: 048
  2. YAZ [Suspect]
     Indication: MENSTRUAL CYCLE MANAGEMENT
     Route: 048
     Dates: start: 20080101, end: 20090401
  3. TORADOL [Concomitant]
     Indication: PAIN
     Dosage: UNK
     Dates: start: 20080901, end: 20080901

REACTIONS (1)
  - CHOLECYSTITIS CHRONIC [None]
